FAERS Safety Report 26047773 (Version 1)
Quarter: 2025Q4

REPORT INFORMATION
  Report Type: Spontaneous
  Country: US (occurrence: US)
  Receive Date: 20251114
  Receipt Date: 20251114
  Transmission Date: 20260118
  Serious: No
  Sender: PFIZER
  Company Number: US-PFIZER INC-202500221277

PATIENT
  Age: 87 Year
  Sex: Male
  Weight: 79.38 kg

DRUGS (1)
  1. PAXLOVID [Suspect]
     Active Substance: NIRMATRELVIR\RITONAVIR
     Indication: COVID-19
     Dosage: 2 NIRMATRELVIR 150MG WITH 1 RITONAVIR 100MG TABLETS ADMINISTERED TOGETHER, TWICE DAILY, FOR 5 DAYS
     Route: 048
     Dates: start: 20251107, end: 20251109

REACTIONS (6)
  - Throat tightness [Recovered/Resolved]
  - Dysphonia [Recovering/Resolving]
  - Dysphagia [Recovering/Resolving]
  - Disease recurrence [Recovering/Resolving]
  - Oropharyngeal pain [Not Recovered/Not Resolved]
  - Condition aggravated [Not Recovered/Not Resolved]

NARRATIVE: CASE EVENT DATE: 20251109
